FAERS Safety Report 7584309-9 (Version None)
Quarter: 2011Q2

REPORT INFORMATION
  Report Type: 
  Country: None (occurrence: None)
  Receive Date: 20110630
  Receipt Date: 20110627
  Transmission Date: 20111010
  Serious: Yes (Hospitalization, Other)
  Sender: FDA-Public Use
  Company Number: FR-PFIZER INC-2011141891

PATIENT
  Age: 57 Year
  Sex: Male

DRUGS (2)
  1. LOVAZA [Concomitant]
     Dosage: UNK
     Dates: start: 20100901
  2. ATORVASTATIN CALCIUM [Suspect]
     Dosage: UNK
     Route: 048
     Dates: start: 20081018, end: 20100901

REACTIONS (8)
  - RHABDOMYOLYSIS [None]
  - ECZEMA [None]
  - DYSAESTHESIA [None]
  - ERECTILE DYSFUNCTION [None]
  - DERMATOMYOSITIS [None]
  - AMYOTROPHY [None]
  - POLYMYOSITIS [None]
  - WEIGHT DECREASED [None]
